FAERS Safety Report 5723347-5 (Version None)
Quarter: 2008Q2

REPORT INFORMATION
  Report Type: 
  Country: None (occurrence: None)
  Receive Date: 20080424
  Receipt Date: 20080411
  Transmission Date: 20081010
  Serious: Yes (Hospitalization)
  Sender: FDA-Public Use
  Company Number: 2008VX000873

PATIENT
  Age: 41 Year
  Sex: Male
  Weight: 104 kg

DRUGS (6)
  1. FLUOROURACIL [Suspect]
     Indication: NASOPHARYNGEAL CANCER
     Dosage: 200 MG; IVDRP
     Route: 041
     Dates: start: 20080128, end: 20080201
  2. CISPLATIN EBEWE (CISPLATIN) [Suspect]
     Indication: NASOPHARYNGEAL CANCER
     Dosage: 44 MG; IVDRP
     Route: 041
     Dates: start: 20071120, end: 20080201
  3. NAVOBAN [Concomitant]
  4. FORTECORTIN [Concomitant]
  5. MORPHINE SULFATE [Concomitant]
  6. NEXIUM [Concomitant]

REACTIONS (5)
  - DRUG INTERACTION [None]
  - GENERAL PHYSICAL HEALTH DETERIORATION [None]
  - HICCUPS [None]
  - NAUSEA [None]
  - VOMITING [None]
